FAERS Safety Report 4640586-5 (Version None)
Quarter: 2005Q2

REPORT INFORMATION
  Report Type: 
  Country: None (occurrence: None)
  Receive Date: 20050419
  Receipt Date: 20050404
  Transmission Date: 20051028
  Serious: Yes (Death)
  Sender: FDA-Public Use
  Company Number: MK200504-0105-1

PATIENT
  Age: 67 Year
  Sex: Male

DRUGS (4)
  1. BAROSPERSE ENEMA KT 454GM/16OZ BARIUM SULFATE [Suspect]
     Indication: BARIUM ENEMA
     Dosage: ONE TIME, PR
     Route: 054
  2. PREDNISOLONE [Concomitant]
  3. SULFASALAZINE [Concomitant]
  4. VINOVEX DIET [Concomitant]

REACTIONS (17)
  - ABDOMINAL PAIN LOWER [None]
  - ARRHYTHMIA [None]
  - BRADYCARDIA [None]
  - BRAIN DAMAGE [None]
  - CARDIAC ARREST [None]
  - COLITIS ULCERATIVE [None]
  - COLONIC POLYP [None]
  - EMPHYSEMA [None]
  - GENERAL PHYSICAL HEALTH DETERIORATION [None]
  - HAEMATOCRIT DECREASED [None]
  - HAEMOGLOBIN DECREASED [None]
  - PROCEDURAL COMPLICATION [None]
  - PROCTOCOLITIS [None]
  - PULMONARY EMBOLISM [None]
  - RESPIRATORY FAILURE [None]
  - VENTRICULAR FIBRILLATION [None]
  - WEIGHT DECREASED [None]
